FAERS Safety Report 7337460-2 (Version None)
Quarter: 2011Q1

REPORT INFORMATION
  Report Type: 
  Country: None (occurrence: None)
  Receive Date: 20110308
  Receipt Date: 20110225
  Transmission Date: 20110831
  Serious: Yes (Other)
  Sender: FDA-Public Use
  Company Number: CH-US-EMD SERONO, INC.-7036351

PATIENT
  Sex: Female
  Weight: 60 kg

DRUGS (4)
  1. REBIF [Suspect]
     Indication: MULTIPLE SCLEROSIS
     Route: 058
     Dates: start: 20100222, end: 20100630
  2. REBIF [Suspect]
     Route: 058
     Dates: start: 20100810, end: 20100831
  3. REBIF [Suspect]
     Route: 058
     Dates: start: 20100701, end: 20100810
  4. PRAMIPEXOLE [Concomitant]
     Indication: RESTLESS LEGS SYNDROME

REACTIONS (9)
  - MULTIPLE SCLEROSIS RELAPSE [None]
  - NECK PAIN [None]
  - BACK PAIN [None]
  - DRUG DOSE OMISSION [None]
  - ASTHENIA [None]
  - FATIGUE [None]
  - MIGRAINE [None]
  - HEADACHE [None]
  - OPTIC NEURITIS [None]
